FAERS Safety Report 5378086-X (Version None)
Quarter: 2007Q3

REPORT INFORMATION
  Report Type: 
  Country: None (occurrence: None)
  Receive Date: 20070702
  Receipt Date: 20070702
  Transmission Date: 20080115
  Serious: Yes (Disabling)
  Sender: FDA-Public Use
  Company Number: None

PATIENT
  Sex: Female
  Weight: 68.0396 kg

DRUGS (1)
  1. GEODON [Suspect]
     Indication: MENTAL DISORDER
     Dosage: 120 MG DAY
     Dates: start: 20050620, end: 20070425

REACTIONS (1)
  - TARDIVE DYSKINESIA [None]
